FAERS Safety Report 23065493 (Version 1)
Quarter: 2023Q4

REPORT INFORMATION
  Report Type: Other
  Country: IT (occurrence: None)
  Receive Date: 20231013
  Receipt Date: 20231013
  Transmission Date: 20240110
  Serious: Yes (Other)
  Sender: FDA-Public Use
  Company Number: None

PATIENT
  Age: 43 Year
  Sex: Female

DRUGS (2)
  1. TRASTUZUMAB [Suspect]
     Active Substance: TRASTUZUMAB
     Indication: Breast cancer
     Dosage: REACTION AFTER THE FIRST CYCLE - START OF THERAPY 05/JAN/2023 - WEEKLY PACLITAXEL + TRASTUZUMAB EVER
     Route: 041
     Dates: start: 20230105
  2. PACLITAXEL [Suspect]
     Active Substance: PACLITAXEL
     Indication: Breast cancer
     Dosage: REACTION AFTER THE FIRST CYCLE - START OF THERAPY 05/JAN/2023 - WEEKLY PACLITAXEL + TRASTUZUMAB EVER
     Route: 065
     Dates: start: 20230112

REACTIONS (2)
  - Leukopenia [Recovered/Resolved]
  - Off label use [Unknown]

NARRATIVE: CASE EVENT DATE: 20230112
